FAERS Safety Report 4423972-8 (Version None)
Quarter: 2004Q3

REPORT INFORMATION
  Report Type: 
  Country: None (occurrence: None)
  Receive Date: 20040809
  Receipt Date: 20040727
  Transmission Date: 20050211
  Serious: Yes (Hospitalization, Other)
  Sender: FDA-Public Use
  Company Number: 2004221745FR

PATIENT
  Age: 50 Year
  Sex: Male

DRUGS (4)
  1. XALACOM(LATANOPROST, TIMOLOL) SOLUTION, STERILE [Suspect]
     Indication: GLAUCOMA
     Dosage: 1 GTT, QD, OPHTHALMIC
     Route: 047
     Dates: start: 20040414
  2. XALATAN [Suspect]
     Indication: GLAUCOMA
     Dosage: 1 GTT, QD, OPHTHALMIC
     Route: 047
     Dates: start: 20031125, end: 20040414
  3. TRAVATAN (TRAVOPROST) [Suspect]
     Indication: GLAUCOMA
     Dosage: 1 GTT, QD
     Dates: start: 20031101, end: 20031125
  4. LUMIGAN [Suspect]
     Indication: GLAUCOMA
     Dosage: 1 GTT, QD
     Dates: start: 20020417, end: 20031101

REACTIONS (2)
  - CATARACT [None]
  - IRIS DISORDER [None]
